FAERS Safety Report 25968643 (Version 1)
Quarter: 2025Q4

REPORT INFORMATION
  Report Type: Spontaneous
  Country: US (occurrence: US)
  Receive Date: 20251028
  Receipt Date: 20251028
  Transmission Date: 20260118
  Serious: No
  Sender: STALLERGENES
  Company Number: US-STALCOR-2025-AER-02608

PATIENT
  Age: 18 Year

DRUGS (3)
  1. PALFORZIA [Suspect]
     Active Substance: PEANUT
     Indication: Food allergy
     Dosage: PALFORZIA 0.5 MG + 1 MG ORAL POWDER IN CAPSULES FOR OPENING
     Route: 048
  2. PALFORZIA [Suspect]
     Active Substance: PEANUT
     Dosage: LEVEL 0, PALFORZIA 1 MG ORAL POWDER IN CAPSULES FOR OPENING. PATIENT WAS ADMINISTERED AN UP-DOSE OF
     Route: 048
  3. PALFORZIA [Suspect]
     Active Substance: PEANUT
     Dosage: PATIENT WAS ADMINISTERED AN UP-DOSE OF 2MG.
     Route: 048
     Dates: start: 20250904

REACTIONS (3)
  - Nausea [Recovering/Resolving]
  - Dyspepsia [Recovering/Resolving]
  - Off label use [Recovering/Resolving]

NARRATIVE: CASE EVENT DATE: 20250904
